FAERS Safety Report 24642152 (Version 1)
Quarter: 2024Q4

REPORT INFORMATION
  Report Type: Other
  Country: CN (occurrence: CN)
  Receive Date: 20241120
  Receipt Date: 20241120
  Transmission Date: 20250115
  Serious: Yes (Hospitalization)
  Sender: PARATEK PHARMACEUTICALS
  Company Number: CN-PARATEK PHARMACEUTICALS, INC.-2024PTK01034

PATIENT
  Age: 74 Year
  Sex: Female
  Weight: 50 kg

DRUGS (2)
  1. NUZYRA [Suspect]
     Active Substance: OMADACYCLINE
     Indication: Bronchiectasis
     Dosage: 0.2 G, QD
     Route: 041
     Dates: start: 20241029, end: 20241029
  2. NUZYRA [Suspect]
     Active Substance: OMADACYCLINE
     Indication: Bronchitis
     Dosage: 0.1 G, QD
     Route: 041
     Dates: start: 20241030, end: 20241030

REACTIONS (2)
  - Macule [Recovering/Resolving]
  - Off label use [Recovered/Resolved]

NARRATIVE: CASE EVENT DATE: 20241029
